FAERS Safety Report 17416526 (Version 2)
Quarter: 2020Q2

REPORT INFORMATION
  Report Type: Report from Study
  Country: JP (occurrence: JP)
  Receive Date: 20200213
  Receipt Date: 20200413
  Transmission Date: 20200713
  Serious: Yes (Hospitalization, Other)
  Sender: FDA-Public Use
  Company Number: JP-ARRAY-2020-07338

PATIENT

DRUGS (2)
  1. BRAFTOVI [Suspect]
     Active Substance: ENCORAFENIB
     Indication: MALIGNANT MELANOMA
     Dosage: 450 MG
     Route: 048
     Dates: start: 20200206, end: 20200207
  2. MEKTOVI [Suspect]
     Active Substance: BINIMETINIB
     Indication: MALIGNANT MELANOMA
     Dosage: 45 MG
     Route: 048
     Dates: start: 20200206, end: 20200207

REACTIONS (8)
  - Malaise [Recovering/Resolving]
  - C-reactive protein increased [Recovering/Resolving]
  - Blood creatine phosphokinase increased [Unknown]
  - Conjunctivitis [Recovered/Resolved]
  - Erythema nodosum [Recovered/Resolved]
  - Asthenia [Recovering/Resolving]
  - Myoglobin blood increased [Unknown]
  - Serous retinal detachment [Not Recovered/Not Resolved]

NARRATIVE: CASE EVENT DATE: 20200207
